FAERS Safety Report 22171697 (Version 1)
Quarter: 2023Q2

REPORT INFORMATION
  Report Type: Spontaneous
  Country: GB (occurrence: GB)
  Receive Date: 20230404
  Receipt Date: 20230404
  Transmission Date: 20230722
  Serious: Yes (Disabling, Other)
  Sender: FDA-Public Use
  Company Number: None

PATIENT
  Sex: Male

DRUGS (2)
  1. CIPROFLOXACIN [Suspect]
     Active Substance: CIPROFLOXACIN
     Indication: Lower respiratory tract infection
     Dosage: UNK (08-MAY)
     Route: 065
  2. CIPROFLOXACIN [Suspect]
     Active Substance: CIPROFLOXACIN
     Indication: Urinary tract infection
     Dosage: UNK (16-JUNE)
     Route: 065

REACTIONS (34)
  - Systemic mastocytosis [Unknown]
  - Coccidioidomycosis [Unknown]
  - Pain [Unknown]
  - Asthma [Unknown]
  - Tendon disorder [Unknown]
  - Back disorder [Unknown]
  - Arthropathy [Unknown]
  - Muscle disorder [Unknown]
  - Memory impairment [Unknown]
  - Pancreatic cyst [Unknown]
  - Arteriosclerosis coronary artery [Unknown]
  - Hepatic lesion [Unknown]
  - Abnormal loss of weight [Unknown]
  - Gallbladder hypofunction [Unknown]
  - Autoimmune hepatitis [Unknown]
  - Autoimmune thyroiditis [Unknown]
  - Biliary colic [Unknown]
  - Bile output decreased [Unknown]
  - Nasopharyngitis [Unknown]
  - Malaise [Unknown]
  - Gastrointestinal injury [Unknown]
  - Heart rate irregular [Unknown]
  - Lethargy [Unknown]
  - Malabsorption [Unknown]
  - Hypothalamo-pituitary disorder [Unknown]
  - Thyroid disorder [Unknown]
  - Ulcer [Unknown]
  - Alopecia [Unknown]
  - Enzyme inhibition [Unknown]
  - Sleep disorder [Unknown]
  - Skin exfoliation [Unknown]
  - Gastrointestinal pain [Unknown]
  - Abdominal pain upper [Unknown]
  - Histamine intolerance [Unknown]
